FAERS Safety Report 7515281-5 (Version None)
Quarter: 2011Q2

REPORT INFORMATION
  Report Type: 
  Country: None (occurrence: None)
  Receive Date: 20110601
  Receipt Date: 20100608
  Transmission Date: 20111010
  Serious: Yes (Life-Threatening, Hospitalization, Other)
  Sender: FDA-Public Use
  Company Number: US-PFIZER INC-2010072104

PATIENT
  Age: 50 Year
  Sex: Female
  Weight: 99.773 kg

DRUGS (6)
  1. CETIRIZINE HCL [Concomitant]
     Dosage: 10 MG, UNK
  2. SONATA [Concomitant]
     Dosage: 10 MG, UNK
  3. TENORETIC [Concomitant]
     Dosage: 25 MG, UNK
  4. CHANTIX [Suspect]
     Indication: SMOKING CESSATION THERAPY
     Dosage: 1 MG, A TABLET 2X/DAY
     Route: 048
     Dates: start: 20070214, end: 20070401
  5. DULOXETINE HYDROCHLORIDE [Concomitant]
     Dosage: 60 MG, UNK
  6. AVAPRO [Concomitant]
     Dosage: 150 MG, UNK

REACTIONS (2)
  - DEPRESSION [None]
  - SUICIDE ATTEMPT [None]
